FAERS Safety Report 10258937 (Version 1)
Quarter: 2014Q2

REPORT INFORMATION
  Report Type: Spontaneous
  Country: US (occurrence: US)
  Receive Date: 20140625
  Receipt Date: 20140625
  Transmission Date: 20141212
  Serious: No
  Sender: FDA-Public Use
  Company Number: US-ASTELLAS-2013US008747

PATIENT
  Sex: Female

DRUGS (6)
  1. VESICARE [Suspect]
     Indication: PRODUCT USED FOR UNKNOWN INDICATION
     Route: 048
     Dates: start: 2012
  2. BACLOFEN [Concomitant]
     Indication: MULTIPLE SCLEROSIS
     Dosage: 20 MG, FIVE TIMES DAILY
     Route: 048
  3. COPAXONE [Concomitant]
     Indication: MULTIPLE SCLEROSIS
     Route: 042
  4. TEGRETOL [Concomitant]
     Indication: CONVULSION
     Route: 048
  5. POTASSIUM [Concomitant]
     Indication: HYPOKALAEMIA
     Dosage: 20 MG, FIVE TIMES DAILY
     Route: 048
  6. MULTIVITAMINS, PLAIN [Concomitant]
     Indication: PRODUCT USED FOR UNKNOWN INDICATION
     Route: 065

REACTIONS (1)
  - Overdose [Unknown]
